FAERS Safety Report 11282141 (Version 1)
Quarter: 2015Q3

REPORT INFORMATION
  Report Type: Spontaneous
  Country: AR (occurrence: AR)
  Receive Date: 20150720
  Receipt Date: 20150720
  Transmission Date: 20151125
  Serious: Yes (Other)
  Sender: FDA-Public Use
  Company Number: AR-AMGEN-ARGSP2014076994

PATIENT
  Age: 43 Year
  Sex: Female

DRUGS (1)
  1. ENBREL [Suspect]
     Active Substance: ETANERCEPT
     Indication: RHEUMATOID ARTHRITIS
     Dosage: 50 MG, WEEKLY
     Route: 065
     Dates: start: 20131211

REACTIONS (8)
  - Mobility decreased [Not Recovered/Not Resolved]
  - Meniscus injury [Unknown]
  - Abasia [Not Recovered/Not Resolved]
  - Arthropathy [Unknown]
  - Gait disturbance [Not Recovered/Not Resolved]
  - Ligament sprain [Not Recovered/Not Resolved]
  - Exostosis [Not Recovered/Not Resolved]
  - Feeling abnormal [Not Recovered/Not Resolved]

NARRATIVE: CASE EVENT DATE: 201503
